FAERS Safety Report 7398905-5 (Version None)
Quarter: 2011Q1

REPORT INFORMATION
  Report Type: 
  Country: None (occurrence: None)
  Receive Date: 20110328
  Receipt Date: 20110314
  Transmission Date: 20110831
  Serious: Yes (Hospitalization)
  Sender: FDA-Public Use
  Company Number: US-2011-0656

PATIENT
  Age: 81 Year
  Sex: Male

DRUGS (4)
  1. VINORELBINE [Suspect]
     Indication: NON-SMALL CELL LUNG CANCER
     Dosage: 44 MG IV
     Route: 042
     Dates: start: 20110217
  2. CETUXIMAB [Suspect]
     Indication: NON-SMALL CELL LUNG CANCER
     Dosage: 700 MG IV
     Route: 042
     Dates: start: 20110217
  3. ADVAIR HFA [Concomitant]
  4. CISPLATIN [Suspect]
     Indication: NON-SMALL CELL LUNG CANCER
     Dosage: 142 MG IV
     Route: 042
     Dates: start: 20110217

REACTIONS (3)
  - DEHYDRATION [None]
  - NEUTROPENIC SEPSIS [None]
  - RENAL FAILURE ACUTE [None]
